FAERS Safety Report 13292619 (Version 1)
Quarter: 2017Q1

REPORT INFORMATION
  Report Type: Spontaneous
  Country: IT (occurrence: IT)
  Receive Date: 20170303
  Receipt Date: 20170303
  Transmission Date: 20170428
  Serious: Yes (Hospitalization)
  Sender: FDA-Public Use
  Company Number: IT-PFIZER INC-2017091304

PATIENT
  Age: 76 Year
  Sex: Male
  Weight: 62 kg

DRUGS (1)
  1. XALKORI [Suspect]
     Active Substance: CRIZOTINIB
     Indication: LUNG ADENOCARCINOMA METASTATIC
     Dosage: 500 MG, DAILY
     Route: 048
     Dates: start: 20160826, end: 20170123

REACTIONS (3)
  - Ascites [Unknown]
  - Oedema [Unknown]
  - Pleural effusion [Unknown]

NARRATIVE: CASE EVENT DATE: 20170123
